FAERS Safety Report 13668313 (Version 1)
Quarter: 2017Q2

REPORT INFORMATION
  Report Type: Spontaneous
  Country: US (occurrence: US)
  Receive Date: 20170619
  Receipt Date: 20170619
  Transmission Date: 20170830
  Serious: Yes (Other)
  Sender: FDA-Public Use
  Company Number: None

PATIENT
  Age: 28 Year
  Sex: Female
  Weight: 57.6 kg

DRUGS (1)
  1. VIIBRYD [Suspect]
     Active Substance: VILAZODONE HYDROCHLORIDE
     Indication: DEPRESSION
     Route: 048
     Dates: start: 20170529, end: 20170617

REACTIONS (7)
  - Diarrhoea [None]
  - Vomiting [None]
  - Confusional state [None]
  - Alcohol use [None]
  - Hallucination [None]
  - Heart rate increased [None]
  - Hallucination, visual [None]

NARRATIVE: CASE EVENT DATE: 20170612
